FAERS Safety Report 12635837 (Version 1)
Quarter: 2016Q3

REPORT INFORMATION
  Report Type: Spontaneous
  Country: US (occurrence: US)
  Receive Date: 20160809
  Receipt Date: 20160809
  Transmission Date: 20161109
  Serious: No
  Sender: FDA-Public Use
  Company Number: US-PFIZER INC-2016359697

PATIENT
  Age: 50 Year
  Sex: Female
  Weight: 97.52 kg

DRUGS (1)
  1. METHOTREXATE SODIUM. [Suspect]
     Active Substance: METHOTREXATE SODIUM
     Indication: RHEUMATOID ARTHRITIS
     Dosage: 10 MG, WEEKLY
     Dates: start: 201501, end: 20160708

REACTIONS (3)
  - Malaise [Unknown]
  - Labyrinthitis [Unknown]
  - Viral infection [Unknown]
